FAERS Safety Report 13488264 (Version 1)
Quarter: 2017Q2

REPORT INFORMATION
  Report Type: Spontaneous
  Country: US (occurrence: US)
  Receive Date: 20170426
  Receipt Date: 20170426
  Transmission Date: 20170830
  Serious: Yes (Hospitalization)
  Sender: FDA-Public Use
  Company Number: US-ARALEZ PHARMACEUTICALS R+D INC.-ARA-TP-US-2017-105

PATIENT
  Age: 74 Year
  Sex: Female
  Weight: 81.72 kg

DRUGS (8)
  1. BRILINTA [Suspect]
     Active Substance: TICAGRELOR
     Indication: ANTICOAGULANT THERAPY
     Route: 048
     Dates: start: 201702
  2. AMLODIPINE [Concomitant]
     Active Substance: AMLODIPINE BESYLATE
     Indication: HYPERTENSION
     Route: 048
     Dates: start: 2016
  3. ASPIRIN. [Concomitant]
     Active Substance: ASPIRIN
     Indication: CEREBROVASCULAR ACCIDENT
     Route: 048
     Dates: start: 1991
  4. PANTOPROLOLE [Concomitant]
     Indication: ABDOMINAL DISCOMFORT
     Dates: start: 201701
  5. DURENORTHINE [Concomitant]
     Indication: PAIN
     Dosage: 1 TABLET MIXED 2MG/0.5MG
     Route: 048
     Dates: start: 20170209
  6. TRAIMETHERINE [Concomitant]
     Indication: PERIPHERAL SWELLING
     Route: 048
     Dates: start: 1991
  7. METOPROLOL SUCCINATE. [Suspect]
     Active Substance: METOPROLOL SUCCINATE
     Indication: HYPERTENSION
     Route: 048
     Dates: start: 1993
  8. NALOXEGOL [Concomitant]
     Active Substance: NALOXEGOL
     Indication: PAIN
     Dosage: 1 TABLET MIXED 2MG/0.5MG
     Route: 048
     Dates: start: 20170209

REACTIONS (3)
  - Renal pain [Recovered/Resolved]
  - Back pain [Recovered/Resolved]
  - Hospitalisation [Recovered/Resolved]

NARRATIVE: CASE EVENT DATE: 201701
